FAERS Safety Report 9554634 (Version 1)
Quarter: 2013Q3

REPORT INFORMATION
  Report Type: Spontaneous
  Country: US (occurrence: US)
  Receive Date: 20130925
  Receipt Date: 20130925
  Transmission Date: 20140515
  Serious: No
  Sender: FDA-Public Use
  Company Number: US-BAXTER-2013BAX035984

PATIENT
  Age: 49 Year
  Sex: Male

DRUGS (1)
  1. IFOSFAMIDE FOR INJECTION [Suspect]
     Indication: B-CELL LYMPHOMA
     Route: 065

REACTIONS (1)
  - Myoclonus [Recovered/Resolved]
